FAERS Safety Report 13069377 (Version 1)
Quarter: 2016Q4

REPORT INFORMATION
  Report Type: Report from Study
  Country: GB (occurrence: GB)
  Receive Date: 20161228
  Receipt Date: 20161228
  Transmission Date: 20170207
  Serious: Yes (Hospitalization, Other)
  Sender: FDA-Public Use
  Company Number: GB-GLAXOSMITHKLINE-GB2016190648

PATIENT
  Sex: Male
  Weight: 148.8 kg

DRUGS (8)
  1. ALBIGLUTIDE [Suspect]
     Active Substance: ALBIGLUTIDE
     Dosage: 50 MG, WE
     Route: 058
     Dates: start: 20161028
  2. METFORMIN [Concomitant]
     Active Substance: METFORMIN HYDROCHLORIDE
     Indication: ACUTE KIDNEY INJURY
     Route: 048
     Dates: end: 20161001
  3. VERAPAMIL [Concomitant]
     Active Substance: VERAPAMIL HYDROCHLORIDE
     Indication: ACUTE KIDNEY INJURY
     Route: 048
     Dates: end: 20161001
  4. ALBIGLUTIDE [Suspect]
     Active Substance: ALBIGLUTIDE
     Indication: TYPE 2 DIABETES MELLITUS
     Dosage: 30 MG, WE
     Route: 058
     Dates: start: 20160616, end: 20161021
  5. ROSUVASTATIN. [Concomitant]
     Active Substance: ROSUVASTATIN
     Indication: ACUTE KIDNEY INJURY
     Route: 048
     Dates: end: 20161001
  6. SECURON SR [Concomitant]
     Active Substance: VERAPAMIL HYDROCHLORIDE
     Indication: ACUTE KIDNEY INJURY
     Route: 048
     Dates: end: 20161001
  7. PANTOPRAZOLE [Concomitant]
     Active Substance: PANTOPRAZOLE SODIUM
     Indication: ACUTE KIDNEY INJURY
     Route: 048
     Dates: end: 20161001
  8. LOSARTAN. [Concomitant]
     Active Substance: LOSARTAN
     Indication: ACUTE KIDNEY INJURY
     Route: 048
     Dates: end: 20161001

REACTIONS (2)
  - Colitis [Unknown]
  - Acute kidney injury [Unknown]
